FAERS Safety Report 9199766 (Version 3)
Quarter: 2013Q2

REPORT INFORMATION
  Report Type: Spontaneous
  Country: US (occurrence: None)
  Receive Date: 20130326
  Receipt Date: 20130530
  Transmission Date: 20140414
  Serious: Yes (Hospitalization, Other)
  Sender: FDA-Public Use
  Company Number: E2B_00000675

PATIENT
  Age: 59 Year
  Sex: Female

DRUGS (1)
  1. MEVACOR [Suspect]
     Indication: HYPERLIPIDAEMIA
     Route: 048
     Dates: start: 20130212, end: 20130225

REACTIONS (3)
  - Anaphylactic reaction [None]
  - Hypersensitivity [None]
  - Adverse drug reaction [None]
